FAERS Safety Report 5662201-4 (Version None)
Quarter: 2008Q1

REPORT INFORMATION
  Report Type: 
  Country: None (occurrence: None)
  Receive Date: 20080312
  Receipt Date: 20080303
  Transmission Date: 20080703
  Serious: Yes (Hospitalization, Other)
  Sender: FDA-Public Use
  Company Number: GB-PFIZER INC-2008007745

PATIENT
  Sex: Female
  Weight: 55 kg

DRUGS (9)
  1. SU-011,248 [Suspect]
     Indication: COLORECTAL CANCER METASTATIC
     Route: 048
  2. IRINOTECAN HCL [Suspect]
     Indication: COLORECTAL CANCER METASTATIC
     Route: 042
  3. LEUCOVORIN CALCIUM [Suspect]
     Indication: COLORECTAL CANCER METASTATIC
     Route: 042
  4. FLUOROURACIL [Suspect]
     Indication: COLORECTAL CANCER METASTATIC
     Route: 042
  5. FLUOROURACIL [Suspect]
     Route: 042
  6. ONDANSETRON [Concomitant]
     Route: 048
     Dates: start: 20080114, end: 20080117
  7. METOCLOPRAMIDE [Concomitant]
     Route: 042
     Dates: start: 20080114, end: 20080114
  8. METOCLOPRAMIDE [Concomitant]
     Route: 048
     Dates: start: 20080115, end: 20080117
  9. ATROPINE [Concomitant]
     Route: 058
     Dates: start: 20080114, end: 20080114

REACTIONS (4)
  - CONSTIPATION [None]
  - GASTROINTESTINAL NECROSIS [None]
  - SMALL INTESTINAL OBSTRUCTION [None]
  - VOMITING [None]
